FAERS Safety Report 15169200 (Version 1)
Quarter: 2018Q3

REPORT INFORMATION
  Report Type: Report from Study
  Country: PT (occurrence: PT)
  Receive Date: 20180720
  Receipt Date: 20180720
  Transmission Date: 20181010
  Serious: Yes (Other)
  Sender: FDA-Public Use
  Company Number: PT-GILEAD-2018-0349806

PATIENT
  Age: 54 Year
  Sex: Male

DRUGS (5)
  1. EFAVIRENZ. [Concomitant]
     Active Substance: EFAVIRENZ
  2. LORAZEPAM. [Concomitant]
     Active Substance: LORAZEPAM
  3. LEDIPASVIR/SOFOSBUVIR [Suspect]
     Active Substance: LEDIPASVIR\SOFOSBUVIR
     Indication: CHRONIC HEPATITIS C
     Dosage: UNK
     Route: 065
  4. ABACAVIR. [Concomitant]
     Active Substance: ABACAVIR
  5. 3TC [Concomitant]
     Active Substance: LAMIVUDINE

REACTIONS (1)
  - Hepatitis B reactivation [Recovered/Resolved]
